FAERS Safety Report 6295503-1 (Version None)
Quarter: 2009Q3

REPORT INFORMATION
  Report Type: 
  Country: None (occurrence: None)
  Receive Date: 20090803
  Receipt Date: 20090729
  Transmission Date: 20100115
  Serious: Yes (Hospitalization)
  Sender: FDA-Public Use
  Company Number: ES-MERCK-0907ESP00034

PATIENT
  Age: 44 Year
  Sex: Male

DRUGS (3)
  1. FOSAMAX [Suspect]
     Indication: OSTEOPENIA
     Route: 048
     Dates: start: 20071201
  2. ESOMEPRAZOLE MAGNESIUM [Suspect]
     Indication: DYSPEPSIA
     Route: 048
     Dates: start: 20080401
  3. TELMISARTAN [Suspect]
     Indication: HYPERTENSION
     Route: 048
     Dates: start: 20080701

REACTIONS (1)
  - CEREBRAL INFARCTION [None]
